FAERS Safety Report 14552748 (Version 2)
Quarter: 2018Q2

REPORT INFORMATION
  Report Type: Report from Study
  Country: JP (occurrence: JP)
  Receive Date: 20180220
  Receipt Date: 20180607
  Transmission Date: 20180711
  Serious: Yes (Hospitalization)
  Sender: FDA-Public Use
  Company Number: JP-ACTELION-A-CH2018-167518

PATIENT
  Age: 45 Year
  Sex: Male

DRUGS (13)
  1. OPSUMIT [Suspect]
     Active Substance: MACITENTAN
     Indication: PULMONARY ARTERIAL HYPERTENSION
     Dosage: 10 MG, OD
     Route: 048
     Dates: start: 20160902
  2. ENALAPRIL MALEATE. [Concomitant]
     Active Substance: ENALAPRIL MALEATE
  3. E KEPPRA [Concomitant]
     Active Substance: LEVETIRACETAM
  4. TREPROST [Concomitant]
     Active Substance: TREPROSTINIL
  5. DEPAKENE [Concomitant]
     Active Substance: VALPROIC ACID
  6. FUROSEMIDE. [Concomitant]
     Active Substance: FUROSEMIDE
  7. WARFARIN [Suspect]
     Active Substance: WARFARIN
     Indication: CARDIAC FAILURE
     Dosage: 4.5 MG, QD
     Route: 048
     Dates: start: 20070427, end: 20170908
  8. TRAMCET [Concomitant]
     Active Substance: ACETAMINOPHEN\TRAMADOL
  9. AMLODIPINE [Concomitant]
     Active Substance: AMLODIPINE BESYLATE
  10. ADCIRCA [Concomitant]
     Active Substance: TADALAFIL
  11. SAMSCA [Concomitant]
     Active Substance: TOLVAPTAN
  12. MAGNESIUM OXIDE. [Concomitant]
     Active Substance: MAGNESIUM OXIDE
  13. OXYGEN. [Concomitant]
     Active Substance: OXYGEN

REACTIONS (9)
  - Neck pain [Recovered/Resolved with Sequelae]
  - Respiratory failure [Recovered/Resolved with Sequelae]
  - Cardiac failure [Recovered/Resolved with Sequelae]
  - Haematoma evacuation [Unknown]
  - Spinal epidural haematoma [Recovered/Resolved with Sequelae]
  - Bladder disorder [Recovered/Resolved with Sequelae]
  - Musculoskeletal pain [Recovered/Resolved with Sequelae]
  - Paralysis [Recovered/Resolved with Sequelae]
  - Depression [Recovered/Resolved]

NARRATIVE: CASE EVENT DATE: 20170127
